FAERS Safety Report 5135117-X (Version None)
Quarter: 2006Q4

REPORT INFORMATION
  Report Type: 
  Country: None (occurrence: None)
  Receive Date: 20060831
  Receipt Date: 20060519
  Transmission Date: 20070319
  Serious: No
  Sender: FDA-Public Use
  Company Number: 2006-BP-05734BP

PATIENT
  Age: 42 Year
  Sex: Female

DRUGS (11)
  1. SPIRIVA [Suspect]
     Indication: ASTHMA
     Dosage: 18 MCG (18 MCG,1 IN 1 D),IH
     Route: 055
     Dates: start: 20060517, end: 20060517
  2. ATROVENT [Concomitant]
  3. PULMICORT [Concomitant]
  4. FORADIL [Concomitant]
  5. ALBUTEROL [Concomitant]
  6. CARDIZEM [Concomitant]
  7. SUDAFED 12 HOUR [Concomitant]
  8. NAPROXEN [Concomitant]
  9. ROBAXIN [Concomitant]
  10. NEURONTIN [Concomitant]
  11. ALLEGRA [Concomitant]

REACTIONS (2)
  - PARAESTHESIA [None]
  - PHARYNGEAL OEDEMA [None]
